FAERS Safety Report 9586080 (Version 1)
Quarter: 2013Q4

REPORT INFORMATION
  Report Type: Spontaneous
  Country: US (occurrence: None)
  Receive Date: 20131002
  Receipt Date: 20131002
  Transmission Date: 20140711
  Serious: No
  Sender: FDA-Public Use
  Company Number: None

PATIENT
  Age: 87 Year
  Sex: Male
  Weight: 68.6 kg

DRUGS (1)
  1. HEPARIN [Suspect]
     Route: 058
     Dates: start: 20130909, end: 20130912

REACTIONS (1)
  - Thrombocytopenia [None]
